FAERS Safety Report 22605109 (Version 1)
Quarter: 2023Q2

REPORT INFORMATION
  Report Type: Spontaneous
  Country: US (occurrence: None)
  Receive Date: 20230614
  Receipt Date: 20230614
  Transmission Date: 20230721
  Serious: Yes (Other)
  Sender: FDA-Public Use
  Company Number: None

PATIENT
  Age: 30 Year
  Sex: Female
  Weight: 126 kg

DRUGS (5)
  1. LAMOTRIGINE [Suspect]
     Active Substance: LAMOTRIGINE
     Indication: Borderline personality disorder
     Dosage: 1 TABLET DAILY ORAL
     Route: 048
     Dates: start: 20230412
  2. BENADRYL [Concomitant]
     Active Substance: DIPHENHYDRAMINE HYDROCHLORIDE
  3. ALLEGRA HIVES 24HR [Concomitant]
     Active Substance: FEXOFENADINE HYDROCHLORIDE
  4. LYSINE [Concomitant]
     Active Substance: LYSINE
  5. EXCEDRINE [Concomitant]

REACTIONS (6)
  - Urticaria [None]
  - Nausea [None]
  - Vomiting [None]
  - Headache [None]
  - Dizziness [None]
  - Dyspnoea [None]
